FAERS Safety Report 9392182 (Version 1)
Quarter: 2013Q3

REPORT INFORMATION
  Report Type: Spontaneous
  Country: IN (occurrence: IN)
  Receive Date: 20130710
  Receipt Date: 20130710
  Transmission Date: 20140515
  Serious: Yes (Hospitalization)
  Sender: FDA-Public Use
  Company Number: IN-ROCHE-1246515

PATIENT
  Age: 31 Year
  Sex: Male

DRUGS (4)
  1. METALYSE [Suspect]
     Indication: CHEST PAIN
     Route: 042
  2. NYSTATIN [Concomitant]
  3. HEPARIN [Concomitant]
     Route: 065
  4. CLOPIDOGREL [Concomitant]

REACTIONS (2)
  - Drug ineffective [Unknown]
  - Chest pain [Recovered/Resolved]
